FAERS Safety Report 14693997 (Version 4)
Quarter: 2020Q2

REPORT INFORMATION
  Report Type: Spontaneous
  Country: US (occurrence: US)
  Receive Date: 20180329
  Receipt Date: 20200618
  Transmission Date: 20200713
  Serious: No
  Sender: FDA-Public Use
  Company Number: US-PFIZER INC-2018128432

PATIENT
  Age: 67 Year
  Sex: Female
  Weight: 80.73 kg

DRUGS (1)
  1. XELJANZ XR [Suspect]
     Active Substance: TOFACITINIB CITRATE
     Indication: RHEUMATOID ARTHRITIS
     Dosage: 11 MG, DAILY
     Dates: start: 2013

REACTIONS (4)
  - Nasopharyngitis [Unknown]
  - Hypersensitivity [Unknown]
  - Pain [Unknown]
  - Malaise [Unknown]
